FAERS Safety Report 6130967-5 (Version None)
Quarter: 2009Q1

REPORT INFORMATION
  Report Type: 
  Country: None (occurrence: None)
  Receive Date: 20090325
  Receipt Date: 20090310
  Transmission Date: 20090719
  Serious: Yes (Other)
  Sender: FDA-Public Use
  Company Number: NL-PFIZER INC-2006048927

PATIENT

DRUGS (6)
  1. LYRICA [Suspect]
     Indication: ILL-DEFINED DISORDER
     Route: 048
     Dates: start: 20060101, end: 20060301
  2. LYRICA [Suspect]
     Indication: RESTLESS LEGS SYNDROME
  3. LISINOPRIL [Concomitant]
     Route: 048
  4. ESIDRIX [Concomitant]
     Route: 048
  5. HCT ^ISIS^ [Concomitant]
     Route: 048
  6. LEVOTHYROXINE SODIUM [Concomitant]
     Route: 048

REACTIONS (1)
  - TORSADE DE POINTES [None]
